FAERS Safety Report 6120424-4 (Version None)
Quarter: 2009Q1

REPORT INFORMATION
  Report Type: 
  Country: None (occurrence: None)
  Receive Date: 20090317
  Receipt Date: 20090310
  Transmission Date: 20090719
  Serious: Yes (Life-Threatening, Hospitalization, Other)
  Sender: FDA-Public Use
  Company Number: PHEH2009US02319

PATIENT
  Sex: Male
  Weight: 99.773 kg

DRUGS (18)
  1. RECLAST [Suspect]
     Indication: OSTEOPOROSIS
     Dosage: 5 MG, 1 YEAR
     Route: 042
     Dates: start: 20090121
  2. ACE INHIBITOR NOS [Concomitant]
  3. DIURETICS [Concomitant]
  4. VITAMIN D3 [Concomitant]
  5. CALCIUM [Concomitant]
  6. ZEBETA [Concomitant]
     Indication: CORONARY ARTERY DISEASE
  7. AMARYL [Concomitant]
     Dosage: 2 MG, UNK
  8. JANUVIA [Concomitant]
  9. DILAUDID [Concomitant]
     Indication: PAIN
  10. DURAGESIC-100 [Concomitant]
     Indication: PAIN
     Dosage: UNK
  11. LIDODERM [Concomitant]
  12. SPIRIVA [Concomitant]
     Indication: CHRONIC OBSTRUCTIVE PULMONARY DISEASE
  13. ADVAIR HFA [Concomitant]
     Indication: CHRONIC OBSTRUCTIVE PULMONARY DISEASE
  14. XOPENEX [Concomitant]
     Indication: CHRONIC OBSTRUCTIVE PULMONARY DISEASE
  15. PLAVIX [Concomitant]
     Indication: CORONARY ARTERY DISEASE
  16. IMDUR [Concomitant]
     Indication: CORONARY ARTERY DISEASE
  17. COUMADIN [Concomitant]
     Indication: ANTICOAGULATION DRUG LEVEL THERAPEUTIC
     Dosage: 3 MG, QD
  18. ACUTE RENAL FAILURE [Suspect]

REACTIONS (25)
  - BLOOD CREATININE INCREASED [None]
  - BLOOD GLUCOSE DECREASED [None]
  - BLOOD UREA INCREASED [None]
  - CATHETER PLACEMENT [None]
  - CHEST X-RAY ABNORMAL [None]
  - CONFUSIONAL STATE [None]
  - DEHYDRATION [None]
  - FLUID RETENTION [None]
  - HAEMATOCRIT DECREASED [None]
  - HAEMOGLOBIN DECREASED [None]
  - HYPOCALCAEMIA [None]
  - HYPONATRAEMIA [None]
  - HYPOTENSION [None]
  - INTERNATIONAL NORMALISED RATIO INCREASED [None]
  - LYMPHOCYTE COUNT DECREASED [None]
  - MUSCLE TWITCHING [None]
  - NAUSEA [None]
  - NEUTROPHIL COUNT INCREASED [None]
  - PYREXIA [None]
  - RED BLOOD CELL COUNT DECREASED [None]
  - RENAL FAILURE ACUTE [None]
  - URINARY HESITATION [None]
  - URINE OUTPUT DECREASED [None]
  - VITAMIN D DECREASED [None]
  - WHITE BLOOD CELL COUNT INCREASED [None]
